FAERS Safety Report 15789510 (Version 1)
Quarter: 2019Q1

REPORT INFORMATION
  Report Type: Spontaneous
  Country: US (occurrence: US)
  Receive Date: 20190104
  Receipt Date: 20190104
  Transmission Date: 20190417
  Serious: No
  Sender: FDA-Public Use
  Company Number: US-BAYER-2019-000748

PATIENT
  Age: 74 Year
  Sex: Female
  Weight: 127 kg

DRUGS (4)
  1. BAYER ASPIRIN [Suspect]
     Active Substance: ASPIRIN
     Dosage: UNK
  2. CLARITIN [Suspect]
     Active Substance: LORATADINE
     Indication: NASOPHARYNGITIS
  3. EQUATE ANTACID [Concomitant]
     Active Substance: CALCIUM CARBONATE
     Dosage: UNK
  4. CLARITIN [Suspect]
     Active Substance: LORATADINE
     Indication: HYPERSENSITIVITY
     Dosage: 1 DF
     Route: 048
     Dates: start: 201812, end: 201812

REACTIONS (5)
  - Dizziness [Recovered/Resolved with Sequelae]
  - Throat tightness [Unknown]
  - Adverse drug reaction [None]
  - Headache [Recovered/Resolved with Sequelae]
  - Incorrect dose administered [Unknown]

NARRATIVE: CASE EVENT DATE: 201812
